FAERS Safety Report 11905870 (Version 1)
Quarter: 2016Q1

REPORT INFORMATION
  Report Type: Spontaneous
  Country: US (occurrence: None)
  Receive Date: 20160108
  Receipt Date: 20160108
  Transmission Date: 20160526
  Serious: Yes (Death, Life-Threatening, Hospitalization)
  Sender: FDA-Public Use
  Company Number: None

PATIENT
  Age: 69 Year
  Sex: Male
  Weight: 74.5 kg

DRUGS (1)
  1. ENZALUTAMIDE. 40 MG CAP. 4 CAP Q DAY [Suspect]
     Active Substance: ENZALUTAMIDE

REACTIONS (3)
  - Thrombocytopenia [None]
  - Hepatic failure [None]
  - Blood creatinine increased [None]

NARRATIVE: CASE EVENT DATE: 20151205
